FAERS Safety Report 5993089-X (Version None)
Quarter: 2008Q4

REPORT INFORMATION
  Report Type: 
  Country: None (occurrence: None)
  Receive Date: 20081212
  Receipt Date: 20080602
  Transmission Date: 20090506
  Serious: No
  Sender: FDA-Public Use
  Company Number: US-AMGEN-KDL284213

PATIENT
  Sex: Female

DRUGS (2)
  1. ENBREL [Suspect]
     Indication: RHEUMATOID ARTHRITIS
     Route: 058
     Dates: start: 20030101
  2. METHOTREXATE [Concomitant]
     Route: 048

REACTIONS (6)
  - DIZZINESS [None]
  - FALL [None]
  - GASTROINTESTINAL INFECTION [None]
  - NAUSEA [None]
  - SKIN LACERATION [None]
  - WOUND INFECTION [None]
